FAERS Safety Report 11616475 (Version 1)
Quarter: 2015Q4

REPORT INFORMATION
  Report Type: Spontaneous
  Country: US (occurrence: US)
  Receive Date: 20151009
  Receipt Date: 20151009
  Transmission Date: 20160304
  Serious: Yes (Other)
  Sender: FDA-Public Use
  Company Number: US-PFIZER INC-2015336367

PATIENT
  Age: 59 Year
  Sex: Male

DRUGS (3)
  1. SIROLIMUS. [Suspect]
     Active Substance: SIROLIMUS
     Indication: LARYNGEAL SQUAMOUS CELL CARCINOMA
     Dosage: 1 MG, DAILY
  2. TACROLIMUS. [Concomitant]
     Active Substance: TACROLIMUS
     Dosage: 90 MG, 2X/DAY
  3. SIROLIMUS. [Suspect]
     Active Substance: SIROLIMUS
     Indication: IMMUNOSUPPRESSANT DRUG THERAPY
     Dosage: 2 MG, DAILY

REACTIONS (6)
  - Odynophagia [Recovered/Resolved]
  - Product use issue [Unknown]
  - Cancer in remission [Unknown]
  - Mucosal inflammation [Recovered/Resolved]
  - Therapeutic response unexpected [Unknown]
  - Radiosensitisation therapy [Recovered/Resolved]
